FAERS Safety Report 4707862-9 (Version None)
Quarter: 2005Q3

REPORT INFORMATION
  Report Type: 
  Country: None (occurrence: None)
  Receive Date: 20050705
  Receipt Date: 20050705
  Transmission Date: 20060218
  Serious: No
  Sender: FDA-Public Use
  Company Number: None

PATIENT
  Sex: Male
  Weight: 74.8435 kg

DRUGS (1)
  1. PREDNISONE [Suspect]
     Dosage: 10MG.    TWICE DAILY    BUCCAL
     Route: 002

REACTIONS (4)
  - ALOPECIA [None]
  - ARTHRALGIA [None]
  - HYPERTENSION [None]
  - MYALGIA [None]
